FAERS Safety Report 6719558-2 (Version None)
Quarter: 2010Q2

REPORT INFORMATION
  Report Type: 
  Country: None (occurrence: None)
  Receive Date: 20100511
  Receipt Date: 20100506
  Transmission Date: 20101027
  Serious: Yes (Death)
  Sender: FDA-Public Use
  Company Number: AU-ABBOTT-10P-008-0640136-00

PATIENT
  Age: 49 Year
  Sex: Female

DRUGS (5)
  1. REDUCTIL 15MG [Suspect]
     Indication: WEIGHT DECREASED
  2. IMIGRAN [Concomitant]
     Indication: MIGRAINE
  3. MERSYNDOL FORTE [Concomitant]
     Indication: MIGRAINE
  4. EFFEXOR [Concomitant]
     Indication: DRUG USE FOR UNKNOWN INDICATION
  5. UNKNOWN MEDICATION (MAYBE MONOPRIL OR NORVASC) [Concomitant]
     Indication: HYPERTENSION

REACTIONS (3)
  - HEADACHE [None]
  - MALAISE [None]
  - PYREXIA [None]
